FAERS Safety Report 6784084-1 (Version None)
Quarter: 2010Q2

REPORT INFORMATION
  Report Type: 
  Country: None (occurrence: None)
  Receive Date: 20100622
  Receipt Date: 20100611
  Transmission Date: 20101027
  Serious: Yes (Other)
  Sender: FDA-Public Use
  Company Number: US-JNJCH-2010012945

PATIENT
  Age: 6 Year
  Sex: Male
  Weight: 22.7 kg

DRUGS (2)
  1. CHILDREN'S BENADRYL ALLERGY [Suspect]
     Indication: SEASONAL ALLERGY
     Dosage: TEXT:2 TSP TWICE
     Route: 048
     Dates: start: 20100409, end: 20100410
  2. ALLERGY MEDICATION [Suspect]
     Indication: DRUG USE FOR UNKNOWN INDICATION
     Dosage: TEXT:UNSPECIFIED
     Route: 047

REACTIONS (3)
  - PNEUMONIA BACTERIAL [None]
  - PRODUCT QUALITY ISSUE [None]
  - PYREXIA [None]
